FAERS Safety Report 11232798 (Version 2)
Quarter: 2015Q4

REPORT INFORMATION
  Report Type: Spontaneous
  Country: US (occurrence: US)
  Receive Date: 20150701
  Receipt Date: 20151013
  Transmission Date: 20160304
  Serious: Yes (Hospitalization)
  Sender: FDA-Public Use
  Company Number: US-PFIZER INC-2015215676

PATIENT
  Age: 58 Year
  Sex: Female
  Weight: 72 kg

DRUGS (17)
  1. METOPROLOL [Concomitant]
     Active Substance: METOPROLOL
     Dosage: UNK
     Dates: start: 2005
  2. PANTOPRAZOLE [Concomitant]
     Active Substance: PANTOPRAZOLE SODIUM
     Dosage: UNK
     Dates: start: 201503
  3. LYRICA [Suspect]
     Active Substance: PREGABALIN
     Indication: FIBROMYALGIA
     Dosage: 150 MG, 1X/DAY
     Dates: start: 2006
  4. VITAMIN E [Concomitant]
     Active Substance: .ALPHA.-TOCOPHEROL
     Dosage: UNK
     Dates: start: 2014
  5. LISINOPRIL. [Concomitant]
     Active Substance: LISINOPRIL
     Dosage: UNK
     Dates: start: 2013
  6. LYRICA [Suspect]
     Active Substance: PREGABALIN
     Dosage: UNK, 2X/DAY (75-150 2X DAY)
     Dates: start: 2008
  7. SPIROLACT [Concomitant]
     Dosage: UNK
     Dates: start: 2013
  8. COMPAZINE [Concomitant]
     Active Substance: PROCHLORPERAZINE MALEATE
     Dosage: UNK, AS NEEDED
     Dates: end: 201508
  9. CHOLECALCIFEROL [Concomitant]
     Active Substance: CHOLECALCIFEROL
     Dosage: UNK
     Dates: start: 201503
  10. BIOTIN [Concomitant]
     Active Substance: BIOTIN
     Dosage: UNK
     Dates: start: 2014
  11. LYRICA [Suspect]
     Active Substance: PREGABALIN
     Dosage: ONCE IN A WHILE, AS NEEDED
  12. LASIX [Concomitant]
     Active Substance: FUROSEMIDE
     Dosage: UNK, THREE TIMES A WEEK
     Dates: start: 2013
  13. CYANOCOBALAMIN. [Concomitant]
     Active Substance: CYANOCOBALAMIN
     Dosage: UNK
     Dates: start: 2014
  14. POTASSIUM [Concomitant]
     Active Substance: POTASSIUM
     Dosage: 20 MEQ, THREE TIMES A WEEK
     Dates: start: 201506
  15. ESTRADIOL. [Concomitant]
     Active Substance: ESTRADIOL
     Dosage: UNK
     Dates: start: 2010
  16. LYRICA [Suspect]
     Active Substance: PREGABALIN
     Dosage: 75 MG, 1X/DAY
  17. CLONAZEPAM. [Concomitant]
     Active Substance: CLONAZEPAM
     Dosage: UNK, NIGHT TIME
     Dates: start: 201505

REACTIONS (8)
  - Burning sensation [Unknown]
  - Blood glucose increased [Not Recovered/Not Resolved]
  - Pain [Unknown]
  - Drug withdrawal syndrome [Unknown]
  - Food craving [Not Recovered/Not Resolved]
  - Abnormal behaviour [Unknown]
  - Drug intolerance [Not Recovered/Not Resolved]
  - Weight increased [Recovered/Resolved]

NARRATIVE: CASE EVENT DATE: 2008
